FAERS Safety Report 9825455 (Version 1)
Quarter: 2014Q1

REPORT INFORMATION
  Report Type: Spontaneous
  Country: US (occurrence: US)
  Receive Date: 20140117
  Receipt Date: 20140117
  Transmission Date: 20141002
  Serious: No
  Sender: FDA-Public Use
  Company Number: US-PFIZER INC-2014014497

PATIENT
  Age: 75 Year
  Sex: Male

DRUGS (1)
  1. VIAGRA [Suspect]
     Indication: ERECTILE DYSFUNCTION
     Dosage: 50 MG (BY CUTTING 100MG TABLET IN HALF), AS NEEDED
     Route: 048
     Dates: end: 20140115

REACTIONS (2)
  - Product colour issue [Unknown]
  - Drug ineffective [Unknown]
